FAERS Safety Report 9416794 (Version 1)
Quarter: 2013Q3

REPORT INFORMATION
  Report Type: Spontaneous
  Country: US (occurrence: US)
  Receive Date: 20130724
  Receipt Date: 20130724
  Transmission Date: 20140515
  Serious: No
  Sender: FDA-Public Use
  Company Number: US-GALDERMA-US13000567

PATIENT
  Sex: Female
  Weight: 83 kg

DRUGS (4)
  1. ORACEA (DOXYCYCLINE, USP) CAPSULES 40 MG [Suspect]
     Indication: ROSACEA
     Route: 048
     Dates: start: 20130115, end: 20130216
  2. FINACEA [Concomitant]
     Indication: ROSACEA
     Route: 061
  3. MULTI VITAMINS [Concomitant]
     Route: 048
  4. VITAMIN B12 [Concomitant]
     Route: 048

REACTIONS (1)
  - Tooth discolouration [Not Recovered/Not Resolved]
